FAERS Safety Report 5643033-X (Version None)
Quarter: 2008Q1

REPORT INFORMATION
  Report Type: 
  Country: None (occurrence: None)
  Receive Date: 20080228
  Receipt Date: 20080219
  Transmission Date: 20080703
  Serious: Yes (Other)
  Sender: FDA-Public Use
  Company Number: PHHO2008FR02553

PATIENT
  Age: 18 Year
  Sex: Male
  Weight: 56 kg

DRUGS (2)
  1. ZOLEDRONIC ACID [Suspect]
     Indication: BONE SARCOMA
     Dosage: 2.8MG
     Route: 042
     Dates: start: 20071230
  2. METHOTREXATE [Suspect]
     Indication: BONE SARCOMA
     Dosage: 21G
     Route: 042
     Dates: start: 20071226, end: 20080102

REACTIONS (3)
  - ECZEMA [None]
  - GENITAL ERYTHEMA [None]
  - PRURITUS [None]
